FAERS Safety Report 4621087-7 (Version None)
Quarter: 2005Q1

REPORT INFORMATION
  Report Type: 
  Country: None (occurrence: None)
  Receive Date: 20050328
  Receipt Date: 20050309
  Transmission Date: 20050727
  Serious: Yes (Hospitalization)
  Sender: FDA-Public Use
  Company Number: DSA_25920_2005

PATIENT
  Age: 78 Year
  Sex: Male

DRUGS (8)
  1. EPROSARTAN [Suspect]
     Indication: HYPERTENSION
     Dosage: 600 MG Q DAY PO
     Route: 048
     Dates: start: 20040317, end: 20041214
  2. NATRII VALPROAS [Concomitant]
  3. ATORVASTATINE [Concomitant]
  4. SOTALOL HCL [Concomitant]
  5. FUROSEMIDUM [Concomitant]
  6. TARTRATE OF ZOLPIDEM [Concomitant]
  7. ALLOPURINOL [Concomitant]
  8. ESCITALOPRAM [Concomitant]

REACTIONS (5)
  - BLOOD PRESSURE INCREASED [None]
  - GOUTY ARTHRITIS [None]
  - RENAL ARTERY STENOSIS [None]
  - RENAL FAILURE [None]
  - SELF-MEDICATION [None]
